FAERS Safety Report 9267653 (Version 1)
Quarter: 2013Q2

REPORT INFORMATION
  Report Type: Spontaneous
  Country: US (occurrence: US)
  Receive Date: 20130502
  Receipt Date: 20130502
  Transmission Date: 20140414
  Serious: No
  Sender: FDA-Public Use
  Company Number: US-ALEXION-A201200738

PATIENT
  Age: 68 Year
  Sex: Female

DRUGS (6)
  1. SOLIRIS 300MG [Suspect]
     Indication: PAROXYSMAL NOCTURNAL HAEMOGLOBINURIA
     Dosage: UNK
     Route: 042
     Dates: start: 201006
  2. SYNTHROID [Concomitant]
     Indication: THYROIDECTOMY
     Dosage: 0.137 MG, UNK
  3. DIOVAN [Concomitant]
     Indication: BLOOD PRESSURE ABNORMAL
     Dosage: 160 MG, UNK
  4. FOLIC ACID [Concomitant]
     Dosage: 1 MG, UNK
  5. GABAPENTIN [Concomitant]
     Indication: NEURALGIA
     Dosage: 300 MG, UNK
  6. CYCLOBENZAPRINE [Concomitant]
     Indication: MUSCLE RELAXANT THERAPY
     Dosage: 10 MG, UNK

REACTIONS (1)
  - Arthropathy [Recovering/Resolving]
